FAERS Safety Report 20633717 (Version 4)
Quarter: 2022Q2

REPORT INFORMATION
  Report Type: Spontaneous
  Country: JP (occurrence: JP)
  Receive Date: 20220324
  Receipt Date: 20220628
  Transmission Date: 20220721
  Serious: Yes (Death, Other)
  Sender: FDA-Public Use
  Company Number: JP-CHUGAI-2022009581

PATIENT
  Age: 66 Year
  Sex: Male

DRUGS (3)
  1. TECENTRIQ [Suspect]
     Active Substance: ATEZOLIZUMAB
     Indication: Hepatocellular carcinoma
     Dosage: SINGLE
     Route: 041
     Dates: start: 20220208, end: 20220208
  2. TECENTRIQ [Suspect]
     Active Substance: ATEZOLIZUMAB
     Dosage: UNK UNK, SINGLE
     Route: 041
     Dates: start: 20220208, end: 20220208
  3. AVASTIN [Suspect]
     Active Substance: BEVACIZUMAB
     Indication: Hepatocellular carcinoma
     Dosage: 15 MILLIGRAM, SINGLE
     Route: 041
     Dates: start: 20220208, end: 20220208

REACTIONS (4)
  - Hepatic function abnormal [Fatal]
  - Large intestinal obstruction [Recovering/Resolving]
  - Thrombosis mesenteric vessel [Recovering/Resolving]
  - Liver disorder [Fatal]

NARRATIVE: CASE EVENT DATE: 20220228
